FAERS Safety Report 9078873 (Version 1)
Quarter: 2013Q1

REPORT INFORMATION
  Report Type: Report from Study
  Country: US (occurrence: US)
  Receive Date: 20130130
  Receipt Date: 20130130
  Transmission Date: 20140127
  Serious: Yes (Other)
  Sender: FDA-Public Use
  Company Number: US-ABBOTT-12P-163-0956622-00

PATIENT
  Age: 61 Year
  Sex: Female

DRUGS (12)
  1. HUMIRA 40 MG/ 0.8 ML PRE-FILLED SYRINGE [Suspect]
     Indication: RHEUMATOID ARTHRITIS
     Dates: start: 201201
  2. METHOTREXATE [Concomitant]
     Indication: PRODUCT USED FOR UNKNOWN INDICATION
     Dosage: 5 TABS EVERY SATURDAY
  3. LEUCOVORIN [Concomitant]
     Indication: PRODUCT USED FOR UNKNOWN INDICATION
     Dosage: WEEKLY
  4. SALICYLATE [Concomitant]
     Indication: PRODUCT USED FOR UNKNOWN INDICATION
  5. VITAMIN D [Concomitant]
     Indication: PRODUCT USED FOR UNKNOWN INDICATION
  6. CALCIUM [Concomitant]
     Indication: PRODUCT USED FOR UNKNOWN INDICATION
  7. NEXIUM [Concomitant]
     Indication: OESOPHAGEAL CARCINOMA
  8. ZANTAC [Concomitant]
     Indication: OESOPHAGEAL CARCINOMA
  9. LISINOPRIL [Concomitant]
     Indication: HYPERTENSION
  10. VYTORIN [Concomitant]
     Indication: PRODUCT USED FOR UNKNOWN INDICATION
     Dosage: 1 TAB AT BEDTIME
  11. CLONIDINE [Concomitant]
     Indication: PRODUCT USED FOR UNKNOWN INDICATION
     Dosage: PATCH WEEKLY
  12. PLAVIX [Concomitant]
     Indication: FIBROMUSCULAR DYSPLASIA

REACTIONS (15)
  - Wrist fracture [Not Recovered/Not Resolved]
  - Wrist fracture [Not Recovered/Not Resolved]
  - Lymphocyte count increased [Unknown]
  - Joint swelling [Unknown]
  - Increased tendency to bruise [Unknown]
  - Contusion [Unknown]
  - Blood blister [Recovered/Resolved]
  - Skin discolouration [Unknown]
  - Injection site bruising [Unknown]
  - Contusion [Unknown]
  - Blood sodium increased [Unknown]
  - Blood chloride increased [Unknown]
  - Nausea [Unknown]
  - Hyperhidrosis [Unknown]
  - Platelet disorder [Unknown]
